FAERS Safety Report 4838577-4 (Version None)
Quarter: 2005Q4

REPORT INFORMATION
  Report Type: 
  Country: None (occurrence: None)
  Receive Date: 20051123
  Receipt Date: 20051123
  Transmission Date: 20060501
  Serious: No
  Sender: FDA-Public Use
  Company Number: None

PATIENT
  Age: 73 Year
  Sex: Male
  Weight: 85.6 kg

DRUGS (3)
  1. ZOLEDRONIC [Suspect]
     Indication: MULTIPLE MYELOMA
     Dosage: 4MG,4MG Q MO, INTRAVEN
     Route: 042
  2. DILTIAZEM HCL [Concomitant]
  3. LORATADINE [Concomitant]

REACTIONS (1)
  - HYPOPHOSPHATAEMIA [None]
